FAERS Safety Report 8413537-5 (Version None)
Quarter: 2012Q2

REPORT INFORMATION
  Report Type: 
  Country: None (occurrence: None)
  Receive Date: 20120605
  Receipt Date: 20120530
  Transmission Date: 20120825
  Serious: Yes (Congenital Anomaly)
  Sender: FDA-Public Use
  Company Number: US-GLAXOSMITHKLINE-A0979896A

PATIENT
  Sex: Male
  Weight: 3.8 kg

DRUGS (1)
  1. PAXIL [Suspect]
     Indication: ANXIOLYTIC THERAPY
     Route: 064

REACTIONS (4)
  - TALIPES [None]
  - CARDIAC MURMUR [None]
  - HEART DISEASE CONGENITAL [None]
  - FOETAL EXPOSURE DURING PREGNANCY [None]
